FAERS Safety Report 9199012 (Version 2)
Quarter: 2013Q2

REPORT INFORMATION
  Report Type: Report from Study
  Country: CH (occurrence: CH)
  Receive Date: 20130329
  Receipt Date: 20130416
  Transmission Date: 20140414
  Serious: Yes (Hospitalization)
  Sender: FDA-Public Use
  Company Number: CH-BRISTOL-MYERS SQUIBB COMPANY-18722843

PATIENT
  Age: 64 Year
  Sex: Female

DRUGS (3)
  1. CETUXIMAB [Suspect]
     Indication: OESOPHAGEAL CARCINOMA
     Dosage: RECENBT INF:450MG, 11TH INF-ONGO.?750MG - ONCE?RECENT INF BEFOR EVENT 25FEB2013
     Route: 042
     Dates: start: 20121219
  2. CISPLATIN [Suspect]
     Indication: OESOPHAGEAL CARCINOMA
     Dosage: RECENT INF:45MG, 7TH INFUSION. 5X?140MG, 2X?RECENT INF BEFOR EVENT 25FEB2013
     Route: 042
     Dates: start: 20121219
  3. DOCETAXEL [Suspect]
     Indication: OESOPHAGEAL CARCINOMA
     Dosage: 35MG, 5X 7TH INF?140MG, 2X?RECENT INF BEFOR EVENT 25FEB2013
     Route: 042
     Dates: start: 20121219

REACTIONS (3)
  - Oesophagitis [Recovered/Resolved]
  - Hypomagnesaemia [Recovered/Resolved]
  - Fatigue [Recovered/Resolved]
